FAERS Safety Report 4751021-0 (Version None)
Quarter: 2005Q3

REPORT INFORMATION
  Report Type: 
  Country: None (occurrence: None)
  Receive Date: 20050822
  Receipt Date: 20050808
  Transmission Date: 20060218
  Serious: Yes (Hospitalization, Other)
  Sender: FDA-Public Use
  Company Number: 2005033409

PATIENT
  Age: 85 Year
  Sex: Male
  Weight: 73.4827 kg

DRUGS (10)
  1. DETROL LA [Suspect]
     Indication: HYPERTONIC BLADDER
     Dosage: 4 MG (4 MG, 1 IN 1 D), ORAL
     Route: 048
     Dates: start: 20030101
  2. PRAVACHOL [Concomitant]
  3. ACETYLSALICYLIC ACID SRT [Concomitant]
  4. CELEBREX [Concomitant]
  5. ESTAZOLAM [Concomitant]
  6. TRAZODONE HCL [Concomitant]
  7. LISINOPRIL [Concomitant]
  8. LASIX [Concomitant]
  9. LONOX (ATROPINE SULFATE, DIPHENOXYLATE HYDROCHLORIDE) [Concomitant]
  10. PREVACID [Concomitant]

REACTIONS (6)
  - DIARRHOEA [None]
  - GOUT [None]
  - HAEMATEMESIS [None]
  - PNEUMONIA [None]
  - POLLAKIURIA [None]
  - ULCER [None]
